FAERS Safety Report 19197041 (Version 3)
Quarter: 2021Q4

REPORT INFORMATION
  Report Type: Report from Study
  Country: US (occurrence: US)
  Receive Date: 20210430
  Receipt Date: 20211101
  Transmission Date: 20220303
  Serious: Yes (Death, Other)
  Sender: FDA-Public Use
  Company Number: US-ACADIA PHARMACEUTICALS INC.-ACA-2021-PIM-001286

PATIENT
  Sex: Male
  Weight: 82 kg

DRUGS (10)
  1. NUPLAZID [Suspect]
     Active Substance: PIMAVANSERIN TARTRATE
     Indication: Parkinson^s disease psychosis
     Dosage: 10 MILLIGRAM, BID
     Route: 048
     Dates: start: 20180424
  2. NUPLAZID [Suspect]
     Active Substance: PIMAVANSERIN TARTRATE
     Indication: Hallucination
     Dosage: 10 MILLIGRAM, BID
     Route: 065
     Dates: start: 2019
  3. NUPLAZID [Suspect]
     Active Substance: PIMAVANSERIN TARTRATE
     Indication: Delusion
     Dosage: 10 MILLIGRAM, QD
     Route: 065
  4. LEVODOPA [Concomitant]
     Active Substance: LEVODOPA
  5. CLONAZEPAM [Concomitant]
     Active Substance: CLONAZEPAM
  6. LISINOPRIL [Concomitant]
     Active Substance: LISINOPRIL
  7. LORATADINE [Concomitant]
     Active Substance: LORATADINE
  8. TAMSULOSIN [Concomitant]
     Active Substance: TAMSULOSIN
  9. CHOLECALCIFEROL [Concomitant]
     Active Substance: CHOLECALCIFEROL
  10. HYDROCHLOROTHIAZIDE\VALSARTAN [Concomitant]
     Active Substance: HYDROCHLOROTHIAZIDE\VALSARTAN

REACTIONS (7)
  - Parkinson^s disease [Recovered/Resolved]
  - Gait inability [Unknown]
  - Musculoskeletal stiffness [Unknown]
  - Delusion [Not Recovered/Not Resolved]
  - Underdose [Not Recovered/Not Resolved]
  - Inappropriate schedule of product administration [Not Recovered/Not Resolved]
  - Drug ineffective [Not Recovered/Not Resolved]
